FAERS Safety Report 21060294 (Version 1)
Quarter: 2022Q3

REPORT INFORMATION
  Report Type: Spontaneous
  Country: US (occurrence: US)
  Receive Date: 20220708
  Receipt Date: 20220708
  Transmission Date: 20221027
  Serious: No
  Sender: FDA-Public Use
  Company Number: US-SANOFI-01171141

PATIENT
  Age: 76 Year
  Sex: Female

DRUGS (2)
  1. KEVZARA [Suspect]
     Active Substance: SARILUMAB
     Indication: Rheumatoid arthritis
     Dosage: 200 MG, QOW
     Dates: start: 202205
  2. METHOTREXATE [Suspect]
     Active Substance: METHOTREXATE
     Dosage: UNK

REACTIONS (22)
  - Pruritus [Unknown]
  - Skin exfoliation [Unknown]
  - Skin burning sensation [Unknown]
  - Dry throat [Unknown]
  - Dysphonia [Unknown]
  - Inflammation [Unknown]
  - Chest pain [Unknown]
  - Depressed mood [Unknown]
  - Pain in extremity [Not Recovered/Not Resolved]
  - Grip strength decreased [Unknown]
  - Erythema [Unknown]
  - Peripheral swelling [Unknown]
  - Joint swelling [Unknown]
  - Drug hypersensitivity [Unknown]
  - Swelling face [Unknown]
  - Dry skin [Unknown]
  - Respiratory tract congestion [Unknown]
  - Rash pruritic [Unknown]
  - Skin discolouration [Unknown]
  - Musculoskeletal disorder [Unknown]
  - Injection related reaction [Unknown]
  - Condition aggravated [Unknown]

NARRATIVE: CASE EVENT DATE: 20220601
